FAERS Safety Report 14805646 (Version 2)
Quarter: 2018Q2

REPORT INFORMATION
  Report Type: Spontaneous
  Country: IN (occurrence: IN)
  Receive Date: 20180425
  Receipt Date: 20180515
  Transmission Date: 20180711
  Serious: Yes (Hospitalization)
  Sender: FDA-Public Use
  Company Number: IN-SA-2018SA106832

PATIENT
  Age: 46 Year
  Sex: Male

DRUGS (2)
  1. CAPECITABINE. [Suspect]
     Active Substance: CAPECITABINE
     Indication: COLON CANCER STAGE III
     Route: 065
  2. OXALIPLATIN. [Suspect]
     Active Substance: OXALIPLATIN
     Indication: COLON CANCER STAGE III
     Route: 065

REACTIONS (11)
  - Inappropriate affect [Recovered/Resolved]
  - Judgement impaired [Recovered/Resolved]
  - Irritability [Recovered/Resolved]
  - Overconfidence [Recovered/Resolved]
  - Increased appetite [Recovered/Resolved]
  - Logorrhoea [Recovered/Resolved]
  - Illogical thinking [Recovered/Resolved]
  - Mania [Recovered/Resolved]
  - Anger [Recovered/Resolved]
  - Insomnia [Recovered/Resolved]
  - Disturbance in attention [Recovered/Resolved]
